FAERS Safety Report 8086189-4 (Version None)
Quarter: 2012Q1

REPORT INFORMATION
  Report Type: 
  Country: None (occurrence: None)
  Receive Date: 20120128
  Receipt Date: 20110425
  Transmission Date: 20120608
  Serious: No
  Sender: FDA-Public Use
  Company Number: US-ABBOTT-11P-163-0721868-00

PATIENT
  Sex: Female
  Weight: 115.77 kg

DRUGS (7)
  1. HUMULIN N [Concomitant]
     Dosage: AT BEDTIME
     Route: 058
  2. HUMIRA [Suspect]
     Indication: RHEUMATOID ARTHRITIS
     Route: 058
     Dates: start: 20090101
  3. METHOTREXATE [Concomitant]
     Indication: PRODUCT USED FOR UNKNOWN INDICATION
     Dosage: 8/WEEKS
  4. METHOTREXATE [Concomitant]
     Route: 048
     Dates: start: 20110401
  5. NOVOLOG [Concomitant]
     Indication: DIABETES MELLITUS
     Dosage: SLIDING SCALE
  6. HUMULIN N [Concomitant]
     Indication: DIABETES MELLITUS
     Dosage: IN THE MORNING
     Route: 058
  7. TRAMADOL HCL [Concomitant]
     Indication: PRODUCT USED FOR UNKNOWN INDICATION

REACTIONS (7)
  - FALL [None]
  - PRURITUS [None]
  - WEIGHT INCREASED [None]
  - DIARRHOEA [None]
  - BACK PAIN [None]
  - ABDOMINAL PAIN UPPER [None]
  - URTICARIA [None]
